FAERS Safety Report 12412766 (Version 4)
Quarter: 2016Q2

REPORT INFORMATION
  Report Type: Spontaneous
  Country: US (occurrence: US)
  Receive Date: 20160527
  Receipt Date: 20160614
  Transmission Date: 20160815
  Serious: No
  Sender: FDA-Public Use
  Company Number: US-PFIZER INC-2016253684

PATIENT
  Age: 49 Year
  Sex: Female

DRUGS (3)
  1. ESTRING [Suspect]
     Active Substance: ESTRADIOL
     Indication: ATROPHIC VULVOVAGINITIS
     Dosage: 2 MG, RING, VAGINALLY INSERTED ONCE EVERY 90 DAYS
     Route: 067
     Dates: start: 20151026
  2. TOPIRAMATE. [Concomitant]
     Active Substance: TOPIRAMATE
     Dosage: 50 MG, 2X/DAY
     Route: 048
     Dates: start: 20111211
  3. ALPRAZOLAM XR [Concomitant]
     Active Substance: ALPRAZOLAM
     Dosage: 2 MG, 4X/DAY
     Route: 048
     Dates: start: 20150814

REACTIONS (2)
  - Product quality issue [Recovered/Resolved]
  - Drug ineffective [Recovered/Resolved]

NARRATIVE: CASE EVENT DATE: 20160420
